FAERS Safety Report 15500760 (Version 1)
Quarter: 2018Q4

REPORT INFORMATION
  Report Type: Spontaneous
  Country: US (occurrence: US)
  Receive Date: 20181015
  Receipt Date: 20181015
  Transmission Date: 20190205
  Serious: No
  Sender: FDA-Public Use
  Company Number: US-MYLANLABS-2018M1071193

PATIENT
  Sex: Female
  Weight: 78 kg

DRUGS (1)
  1. LORAZEPAM TABLETS USP [Suspect]
     Active Substance: LORAZEPAM
     Indication: ANXIETY
     Dosage: UNK
     Route: 048

REACTIONS (4)
  - Nervousness [Unknown]
  - General physical health deterioration [Unknown]
  - Chest pain [Unknown]
  - Dysstasia [Unknown]
